FAERS Safety Report 9784703 (Version 1)
Quarter: 2013Q4

REPORT INFORMATION
  Report Type: Report from Study
  Country: US (occurrence: US)
  Receive Date: 20131226
  Receipt Date: 20131226
  Transmission Date: 20140711
  Serious: Yes (Other)
  Sender: FDA-Public Use
  Company Number: US-ROCHE-1322309

PATIENT
  Sex: Male
  Weight: 80.4 kg

DRUGS (6)
  1. NUTROPIN AQ [Suspect]
     Indication: HYPOPITUITARISM
     Route: 058
     Dates: end: 20130228
  2. NUTROPIN AQ [Suspect]
     Indication: GROWTH HORMONE DEFICIENCY
  3. LEVOTHYROXINE [Concomitant]
     Route: 048
  4. TESTOSTERONE [Concomitant]
     Route: 030
  5. SOLU-CORTEF [Concomitant]
     Route: 030
  6. CORTEF [Concomitant]
     Route: 048

REACTIONS (6)
  - Insulin-like growth factor decreased [Unknown]
  - Asthenia [Unknown]
  - Fatigue [Unknown]
  - Thyroxine decreased [Unknown]
  - Growth retardation [Unknown]
  - Facial asymmetry [Unknown]
